FAERS Safety Report 20801060 (Version 1)
Quarter: 2022Q2

REPORT INFORMATION
  Report Type: Report from Study
  Country: BR (occurrence: BR)
  Receive Date: 20220509
  Receipt Date: 20220509
  Transmission Date: 20220721
  Serious: Yes (Other)
  Sender: FDA-Public Use
  Company Number: BR-NOVARTISPH-NVSC2022BR105114

PATIENT
  Sex: Female

DRUGS (1)
  1. TIMOLOL MALEATE\TRAVOPROST [Suspect]
     Active Substance: TIMOLOL MALEATE\TRAVOPROST
     Indication: Product used for unknown indication
     Dosage: UNK, (MORE THAN 5 YEARS)
     Route: 065

REACTIONS (3)
  - Glaucoma [Unknown]
  - Pain [Unknown]
  - Intraocular pressure increased [Not Recovered/Not Resolved]
